FAERS Safety Report 13654835 (Version 1)
Quarter: 2017Q2

REPORT INFORMATION
  Report Type: Spontaneous
  Country: ES (occurrence: ES)
  Receive Date: 20170615
  Receipt Date: 20170615
  Transmission Date: 20170830
  Serious: Yes (Other)
  Sender: FDA-Public Use
  Company Number: ES-009507513-1706ESP002453

PATIENT
  Age: 32 Year
  Sex: Female

DRUGS (2)
  1. EULEXIN [Suspect]
     Active Substance: FLUTAMIDE
     Indication: ANDROGENETIC ALOPECIA
     Route: 048
  2. PROSCAR [Suspect]
     Active Substance: FINASTERIDE
     Indication: ANDROGENETIC ALOPECIA
     Route: 048

REACTIONS (5)
  - Contraindicated product administered [Unknown]
  - Weight increased [Recovered/Resolved]
  - Weight decreased [Unknown]
  - Product use in unapproved indication [Unknown]
  - Product use issue [Unknown]
